FAERS Safety Report 8838676 (Version 1)
Quarter: 2012Q4

REPORT INFORMATION
  Report Type: 
  Country: US (occurrence: US)
  Receive Date: 20121012
  Receipt Date: 20121012
  Transmission Date: 20130627
  Serious: Yes (Hospitalization, Other)
  Sender: FDA-Public Use
  Company Number: US-CELGENEUS-163-21880-12081483

PATIENT
  Age: 86 None
  Sex: Male

DRUGS (16)
  1. REVLIMID [Suspect]
     Indication: MULTIPLE MYELOMA
     Dosage: 10 Milligram
     Route: 048
     Dates: start: 20120711
  2. REVLIMID [Suspect]
     Dosage: 10 Milligram
     Route: 048
     Dates: start: 201208
  3. PACKED CELLS [Concomitant]
     Indication: DRUG USE FOR UNKNOWN INDICATION
     Dosage: 2 units
     Route: 041
     Dates: start: 201205
  4. HYDROCHLOROTHIAZIDE [Concomitant]
     Indication: BLOOD PRESSURE
     Dosage: 12.5 Milligram
     Route: 048
     Dates: end: 20120727
  5. HYDROCHLOROTHIAZIDE [Concomitant]
     Dosage: 12.5 Milligram
     Route: 048
     Dates: start: 2012
  6. IBUPROFEN [Concomitant]
     Indication: PAIN
     Dosage: 800 Milligram
     Route: 048
  7. DECADRON [Concomitant]
     Indication: DRUG USE FOR UNKNOWN INDICATION
     Dosage: 40 Milligram
     Route: 048
     Dates: end: 20120727
  8. DECADRON [Concomitant]
     Dosage: 5.7143 Milligram
     Route: 048
     Dates: start: 2012
  9. ASPIRIN [Concomitant]
     Indication: DRUG USE FOR UNKNOWN INDICATION
     Dosage: 325 Milligram
     Route: 048
  10. FERROUS SULFATE [Concomitant]
     Indication: DRUG USE FOR UNKNOWN INDICATION
     Dosage: 648 Milligram
     Route: 048
  11. LISINOPRIL [Concomitant]
     Indication: BLOOD PRESSURE
     Dosage: 20 Milligram
     Route: 048
     Dates: end: 20120727
  12. LISINOPRIL [Concomitant]
     Dosage: 20 Milligram
     Route: 048
     Dates: start: 2012
  13. PROTONIX [Concomitant]
     Indication: DRUG USE FOR UNKNOWN INDICATION
     Dosage: 40 Milligram
     Route: 048
  14. MICRO-K [Concomitant]
     Indication: DRUG USE FOR UNKNOWN INDICATION
     Dosage: 40 Milliequivalents
     Route: 048
  15. TYLENOL [Concomitant]
     Indication: DRUG USE FOR UNKNOWN INDICATION
     Route: 048
  16. ZOFRAN [Concomitant]
     Indication: DRUG USE FOR UNKNOWN INDICATION
     Route: 048

REACTIONS (3)
  - Convulsion [Unknown]
  - Cerebrovascular accident [Recovering/Resolving]
  - Atrial fibrillation [Unknown]
